FAERS Safety Report 5225827-8 (Version None)
Quarter: 2007Q1

REPORT INFORMATION
  Report Type: 
  Country: None (occurrence: None)
  Receive Date: 20070201
  Receipt Date: 20070122
  Transmission Date: 20070707
  Serious: Yes (Hospitalization)
  Sender: FDA-Public Use
  Company Number: PHNR2007AU00523

PATIENT
  Age: 99 Year
  Sex: Male

DRUGS (6)
  1. COMTAN [Suspect]
     Indication: PARKINSON'S DISEASE
     Route: 048
  2. CABASER [Suspect]
     Indication: PARKINSON'S DISEASE
     Route: 048
  3. ZESTRIL [Concomitant]
  4. MICARDIS HCT [Concomitant]
  5. SINEMET [Concomitant]
  6. STALEVO 100 [Suspect]
     Indication: PARKINSON'S DISEASE
     Route: 048

REACTIONS (8)
  - AGGRESSION [None]
  - CERVICAL VERTEBRAL FRACTURE [None]
  - FALL [None]
  - HOMICIDAL IDEATION [None]
  - PARANOIA [None]
  - RAPID EYE MOVEMENTS SLEEP ABNORMAL [None]
  - RESPIRATORY ARREST [None]
  - SLEEP DISORDER [None]
